FAERS Safety Report 16854943 (Version 1)
Quarter: 2019Q3

REPORT INFORMATION
  Report Type: Spontaneous
  Country: US (occurrence: US)
  Receive Date: 20190805
  Receipt Date: 20190805
  Transmission Date: 20191005
  Serious: Yes (Hospitalization)
  Sender: FDA-Public Use
  Company Number: None

PATIENT
  Age: 89 Year
  Sex: Male

DRUGS (18)
  1. BREO ELLIPTATIN [Concomitant]
  2. GABAPENTIN. [Concomitant]
     Active Substance: GABAPENTIN
  3. CIPROFLOXACIN. [Concomitant]
     Active Substance: CIPROFLOXACIN
  4. FUROSEMIDE. [Concomitant]
     Active Substance: FUROSEMIDE
  5. IMATINIB  400 MG [Suspect]
     Active Substance: IMATINIB
     Route: 048
     Dates: start: 20160324
  6. ASPIRIN. [Concomitant]
     Active Substance: ASPIRIN
  7. METOPROLOL. [Concomitant]
     Active Substance: METOPROLOL
  8. ZINC OXIDE. [Concomitant]
     Active Substance: ZINC OXIDE
  9. ATORVASTATIN [Concomitant]
     Active Substance: ATORVASTATIN
  10. GLEEVEC [Concomitant]
     Active Substance: IMATINIB MESYLATE
  11. LANTUS [Concomitant]
     Active Substance: INSULIN GLARGINE
  12. AGGRENOX [Concomitant]
     Active Substance: ASPIRIN\DIPYRIDAMOLE
  13. FLOMAX [Concomitant]
     Active Substance: TAMSULOSIN HYDROCHLORIDE
  14. IRON [Concomitant]
     Active Substance: IRON
  15. OXYCODONE [Concomitant]
     Active Substance: OXYCODONE
  16. VITAMIN C [Concomitant]
     Active Substance: ASCORBIC ACID
  17. VITAMIN D3 [Concomitant]
     Active Substance: CHOLECALCIFEROL
  18. LEVOTHYROXIN [Concomitant]
     Active Substance: LEVOTHYROXINE

REACTIONS (2)
  - Kidney infection [None]
  - Foot amputation [None]
